FAERS Safety Report 9892575 (Version 1)
Quarter: 2014Q1

REPORT INFORMATION
  Report Type: Spontaneous
  Country: JP (occurrence: JP)
  Receive Date: 20140212
  Receipt Date: 20140212
  Transmission Date: 20141002
  Serious: Yes (Hospitalization)
  Sender: FDA-Public Use
  Company Number: PHHY2014JP013050

PATIENT
  Age: 44 Year
  Sex: Male

DRUGS (3)
  1. DIGOXIN [Suspect]
     Indication: CONGESTIVE CARDIOMYOPATHY
     Dosage: 0.125 MG, DAILY
  2. FUROSEMIDE [Suspect]
     Indication: CONGESTIVE CARDIOMYOPATHY
     Dosage: 40 MG, DAILY
  3. PROPRANOLOL [Suspect]
     Indication: CONGESTIVE CARDIOMYOPATHY
     Dosage: 30 MG, UNK

REACTIONS (12)
  - Tachycardia induced cardiomyopathy [Recovering/Resolving]
  - Cardiac failure [Recovering/Resolving]
  - Cardiomegaly [Recovering/Resolving]
  - Atrial tachycardia [Recovering/Resolving]
  - Left ventricular dysfunction [Recovering/Resolving]
  - Ventricular dyssynchrony [Recovering/Resolving]
  - Dilatation ventricular [Recovering/Resolving]
  - Ejection fraction decreased [Recovering/Resolving]
  - Blood pressure decreased [Recovering/Resolving]
  - Disease progression [Unknown]
  - Fatigue [Unknown]
  - Drug intolerance [Unknown]
